FAERS Safety Report 4964040-6 (Version None)
Quarter: 2006Q1

REPORT INFORMATION
  Report Type: 
  Country: None (occurrence: None)
  Receive Date: 20060330
  Receipt Date: 20060309
  Transmission Date: 20060701
  Serious: No
  Sender: FDA-Public Use
  Company Number: US200603002531

PATIENT
  Age: 52 Year
  Sex: Male

DRUGS (12)
  1. CYMBALTA [Suspect]
     Indication: DEPRESSION
     Dosage: 60 MG, DAILY (1/D), ORAL
     Route: 048
     Dates: start: 20050125
  2. PREGABALIN (PREGABALIN) [Concomitant]
  3. KEPPRA /USA/ (LEVETIRACETAM) [Concomitant]
  4. FLEXERIL [Concomitant]
  5. RELAFEN [Concomitant]
  6. OXYCODONE (OXYCODONE) [Concomitant]
  7. TYLENOL W/ CODEINE [Concomitant]
  8. CELEBREX [Concomitant]
  9. VALIUM /NET/ (DIAZEPAM) [Concomitant]
  10. AMBIEN [Concomitant]
  11. ULTRACET [Concomitant]
  12. METHADONE HCL [Concomitant]

REACTIONS (4)
  - ALANINE AMINOTRANSFERASE INCREASED [None]
  - ASPARTATE AMINOTRANSFERASE INCREASED [None]
  - BLOOD ALKALINE PHOSPHATASE INCREASED [None]
  - PHARMACEUTICAL PRODUCT COMPLAINT [None]
